FAERS Safety Report 14707423 (Version 1)
Quarter: 2018Q2

REPORT INFORMATION
  Report Type: Other
  Country: GB (occurrence: GB)
  Receive Date: 20180403
  Receipt Date: 20180403
  Transmission Date: 20180711
  Serious: Yes (Other)
  Sender: FDA-Public Use
  Company Number: GB-STRIDES ARCOLAB LIMITED-2018SP002469

PATIENT

DRUGS (4)
  1. METRONIDAZOLE. [Suspect]
     Active Substance: METRONIDAZOLE
     Dosage: 600 MG/DAY INTRAVENOUSLY FOR 2 DAYS AND THEN ORALLY FOR 7 (MATERNAL)
     Route: 063
  2. METRONIDAZOLE. [Suspect]
     Active Substance: METRONIDAZOLE
     Indication: PRODUCT USED FOR UNKNOWN INDICATION
     Dosage: 600 MG/DAY INTRAVENOUSLY FOR 2 DAYS AND THEN ORALLY FOR 7 (MATERNAL)
     Route: 063
     Dates: start: 20170820, end: 20170829
  3. CEFALEXIN [Suspect]
     Active Substance: CEPHALEXIN
     Indication: PRODUCT USED FOR UNKNOWN INDICATION
     Dosage: 1500 MG/DAY INTRAVENOUSLY FOR 2 DAYS AND THEN ORALLY FOR 7 (MATERNAL)
     Route: 063
     Dates: start: 20170820, end: 20170829
  4. CEFALEXIN [Suspect]
     Active Substance: CEPHALEXIN
     Dosage: 1500 MG/DAY INTRAVENOUSLY FOR 2 DAYS AND THEN ORALLY FOR 7 (MATERNAL)UNK
     Route: 063

REACTIONS (5)
  - Oral candidiasis [Unknown]
  - Abdominal pain [Unknown]
  - Haematochezia [Unknown]
  - Lactose intolerance [Unknown]
  - Exposure via breast milk [Unknown]
